FAERS Safety Report 20815605 (Version 1)
Quarter: 2022Q2

REPORT INFORMATION
  Report Type: Spontaneous
  Country: US (occurrence: US)
  Receive Date: 20220511
  Receipt Date: 20220511
  Transmission Date: 20220720
  Serious: No
  Sender: FDA-Public Use
  Company Number: US-PFIZER INC-202101317274

PATIENT
  Sex: Female

DRUGS (1)
  1. HYDROXYZINE PAMOATE [Suspect]
     Active Substance: HYDROXYZINE PAMOATE
     Indication: Migraine
     Dosage: 10 MG, 3X/DAY

REACTIONS (2)
  - Alopecia [Unknown]
  - Off label use [Unknown]
